FAERS Safety Report 18768254 (Version 1)
Quarter: 2021Q1

REPORT INFORMATION
  Report Type: Spontaneous
  Country: US (occurrence: US)
  Receive Date: 20210121
  Receipt Date: 20210121
  Transmission Date: 20210419
  Serious: Yes (Other)
  Sender: FDA-Public Use
  Company Number: US-009507513-2101USA009166

PATIENT
  Sex: Female

DRUGS (2)
  1. VELCADE [Concomitant]
     Active Substance: BORTEZOMIB
     Dosage: UNK
  2. DECADRON [Suspect]
     Active Substance: DEXAMETHASONE
     Dosage: UNK
     Route: 048
     Dates: start: 20200103

REACTIONS (1)
  - Syncope [Unknown]
